FAERS Safety Report 8018828-8 (Version None)
Quarter: 2012Q1

REPORT INFORMATION
  Report Type: 
  Country: None (occurrence: None)
  Receive Date: 20120103
  Receipt Date: 20111227
  Transmission Date: 20120608
  Serious: Yes (Other)
  Sender: FDA-Public Use
  Company Number: US-PFIZER INC-2011314804

PATIENT

DRUGS (4)
  1. PREDNISONE TAB [Suspect]
     Indication: BRONCHITIS
     Dosage: UNK
  2. AZITHROMYCIN [Suspect]
     Indication: BRONCHITIS
     Dosage: UNK
  3. CEPHALEXIN [Suspect]
     Indication: BRONCHITIS
     Dosage: UNK
  4. BENZONATATE [Suspect]
     Indication: BRONCHITIS
     Dosage: UNK

REACTIONS (2)
  - DRUG INEFFECTIVE [None]
  - PNEUMONIA [None]
